FAERS Safety Report 24723130 (Version 1)
Quarter: 2024Q4

REPORT INFORMATION
  Report Type: Spontaneous
  Country: FR (occurrence: FR)
  Receive Date: 20241211
  Receipt Date: 20241211
  Transmission Date: 20250115
  Serious: Yes (Life-Threatening, Hospitalization)
  Sender: Alora Pharma
  Company Number: FR-ACELLA PHARMACEUTICALS, LLC-2024ALO00564

PATIENT
  Age: 59 Year
  Sex: Male

DRUGS (1)
  1. DOXYCYCLINE [Suspect]
     Active Substance: DOXYCYCLINE
     Indication: Infection parasitic

REACTIONS (4)
  - Cardiogenic shock [Recovered/Resolved]
  - Eosinophilic myocarditis [Recovered/Resolved]
  - Cardio-respiratory arrest [Recovered/Resolved]
  - Drug reaction with eosinophilia and systemic symptoms [Recovered/Resolved]
